FAERS Safety Report 5690231-5 (Version None)
Quarter: 2008Q2

REPORT INFORMATION
  Report Type: 
  Country: None (occurrence: None)
  Receive Date: 20080401
  Receipt Date: 20080321
  Transmission Date: 20081010
  Serious: Yes (Hospitalization)
  Sender: FDA-Public Use
  Company Number: US-ROCHE-549416

PATIENT
  Age: 54 Year
  Sex: Male
  Weight: 98 kg

DRUGS (13)
  1. PEGASYS [Suspect]
     Indication: HEPATITIS C
     Route: 058
     Dates: start: 20080201, end: 20080208
  2. PEGASYS [Suspect]
     Route: 058
     Dates: start: 20080220
  3. RIBAVIRIN [Suspect]
     Indication: HEPATITIS C
     Route: 048
     Dates: start: 20080202, end: 20080214
  4. RIBAVIRIN [Suspect]
     Route: 048
     Dates: start: 20080220
  5. VX-950 [Suspect]
     Indication: HEPATITIS C
     Route: 048
     Dates: start: 20080201, end: 20080214
  6. VX-950 [Suspect]
     Route: 048
     Dates: start: 20080220
  7. PERCOCET [Concomitant]
     Indication: BACK PAIN
     Route: 048
     Dates: start: 20070901
  8. NIFEDIPINE [Concomitant]
     Route: 048
     Dates: start: 19950101, end: 20080220
  9. HYDROCHLOROTHIAZIDE [Concomitant]
     Dosage: DOSE REPORTED AS 37.5/25.
     Route: 048
     Dates: start: 19950101
  10. TIMOLOL MALEATE [Concomitant]
     Indication: GLAUCOMA
     Dosage: GIVEN EVERY MORNING.
     Route: 047
     Dates: start: 20060101
  11. PROTONIX [Concomitant]
     Route: 048
     Dates: start: 20080213
  12. BENADRYL [Concomitant]
     Dosage: GIVEN AT BEDTIME.
     Route: 048
     Dates: start: 20080213
  13. LISINOPRIL [Concomitant]
     Route: 048
     Dates: start: 20080221

REACTIONS (12)
  - ABDOMINAL PAIN UPPER [None]
  - ASTHENIA [None]
  - BLOOD PRESSURE ORTHOSTATIC INCREASED [None]
  - DIZZINESS [None]
  - DYSPEPSIA [None]
  - DYSPNOEA [None]
  - ELECTROCARDIOGRAM CHANGE [None]
  - FATIGUE [None]
  - HYPERHIDROSIS [None]
  - NAUSEA [None]
  - NON-CARDIAC CHEST PAIN [None]
  - VOMITING [None]
